FAERS Safety Report 5963587-3 (Version None)
Quarter: 2008Q4

REPORT INFORMATION
  Report Type: 
  Country: None (occurrence: None)
  Receive Date: 20081124
  Receipt Date: 20081118
  Transmission Date: 20090506
  Serious: Yes (Hospitalization)
  Sender: FDA-Public Use
  Company Number: DE-AVENTIS-200813027DE

PATIENT
  Age: 73 Year
  Sex: Male

DRUGS (6)
  1. TAXOTERE [Suspect]
     Route: 041
     Dates: start: 20080924, end: 20080924
  2. FLUOROURACIL [Suspect]
     Route: 041
     Dates: start: 20080924, end: 20080924
  3. FOLINSAEURE [Suspect]
     Route: 041
     Dates: start: 20080924, end: 20080924
  4. OXALIPLATIN [Suspect]
     Route: 041
     Dates: start: 20080924, end: 20080924
  5. KEVATRIL [Concomitant]
     Indication: DRUG USE FOR UNKNOWN INDICATION
  6. FORTECORTIN                        /00016001/ [Concomitant]
     Indication: DRUG USE FOR UNKNOWN INDICATION

REACTIONS (2)
  - C-REACTIVE PROTEIN INCREASED [None]
  - NEUTROPENIA [None]
